FAERS Safety Report 9296634 (Version 3)
Quarter: 2014Q1

REPORT INFORMATION
  Report Type: Spontaneous
  Country: US (occurrence: US)
  Receive Date: 20130517
  Receipt Date: 20140313
  Transmission Date: 20141002
  Serious: No
  Sender: FDA-Public Use
  Company Number: US-009507513-0802USA00409

PATIENT
  Sex: Male

DRUGS (2)
  1. PROPECIA [Suspect]
     Indication: ALOPECIA
     Dosage: 1 MG, QD
     Route: 048
     Dates: start: 2005, end: 2006
  2. PROPECIA [Suspect]
     Dosage: 1 MG, QD
     Route: 048
     Dates: start: 200601, end: 200607

REACTIONS (7)
  - Hypogonadism [Unknown]
  - Blood testosterone decreased [Unknown]
  - Anxiety [Unknown]
  - Premature ejaculation [Unknown]
  - Sexual dysfunction [Not Recovered/Not Resolved]
  - Libido decreased [Not Recovered/Not Resolved]
  - Erectile dysfunction [Not Recovered/Not Resolved]
